FAERS Safety Report 13996708 (Version 2)
Quarter: 2017Q4

REPORT INFORMATION
  Report Type: Spontaneous
  Country: US (occurrence: US)
  Receive Date: 20170921
  Receipt Date: 20171207
  Transmission Date: 20180321
  Serious: No
  Sender: FDA-Public Use
  Company Number: US-ALLERGAN-1733374US

PATIENT
  Age: 69 Year
  Sex: Female

DRUGS (1)
  1. VIBERZI [Suspect]
     Active Substance: ELUXADOLINE
     Indication: IRRITABLE BOWEL SYNDROME
     Dosage: 50 MG, BID
     Route: 048
     Dates: start: 20170721, end: 20170731

REACTIONS (4)
  - Abdominal rigidity [Recovering/Resolving]
  - Abdominal pain upper [Recovering/Resolving]
  - Constipation [Unknown]
  - Wrong technique in product usage process [Unknown]

NARRATIVE: CASE EVENT DATE: 20170731
